FAERS Safety Report 14112528 (Version 2)
Quarter: 2018Q2

REPORT INFORMATION
  Report Type: Report from Study
  Country: GB (occurrence: GB)
  Receive Date: 20171021
  Receipt Date: 20180604
  Transmission Date: 20180711
  Serious: Yes (Hospitalization)
  Sender: FDA-Public Use
  Company Number: GB-B.I. PHARMACEUTICALS,INC./RIDGEFIELD-2017-BI-031157

PATIENT
  Age: 49 Year
  Sex: Female
  Weight: 48.2 kg

DRUGS (8)
  1. PEMETREXED. [Concomitant]
     Active Substance: PEMETREXED
     Route: 042
     Dates: start: 20170518
  2. CISPLASTIN [Suspect]
     Active Substance: CISPLATIN
     Route: 042
     Dates: start: 20170518
  3. TRAMADOL. [Concomitant]
     Active Substance: TRAMADOL
     Indication: PAIN
     Route: 048
     Dates: start: 201702
  4. NICOTINE TRANSDERMAL SYSTEM [Concomitant]
     Active Substance: NICOTINE
     Indication: SMOKING CESSATION THERAPY
     Route: 061
     Dates: start: 20170518
  5. PEMETREXED. [Concomitant]
     Active Substance: PEMETREXED
     Indication: PLEURAL MESOTHELIOMA MALIGNANT
     Route: 042
     Dates: start: 20170518
  6. BIBF 1120 [Suspect]
     Active Substance: NINTEDANIB
     Indication: MESOTHELIOMA MALIGNANT
     Route: 048
     Dates: start: 20170519
  7. CISPLASTIN [Suspect]
     Active Substance: CISPLATIN
     Indication: PLEURAL MESOTHELIOMA MALIGNANT
     Route: 042
     Dates: start: 20170518
  8. PARACETAMOL [Concomitant]
     Active Substance: ACETAMINOPHEN
     Indication: PAIN
     Route: 048
     Dates: start: 201702

REACTIONS (2)
  - Lower respiratory tract infection [Recovered/Resolved]
  - Neutropenia [Recovered/Resolved]

NARRATIVE: CASE EVENT DATE: 20170525
